FAERS Safety Report 7739440-1 (Version None)
Quarter: 2011Q3

REPORT INFORMATION
  Report Type: 
  Country: None (occurrence: None)
  Receive Date: 20110909
  Receipt Date: 20110902
  Transmission Date: 20111222
  Serious: Yes (Life-Threatening, Hospitalization)
  Sender: FDA-Public Use
  Company Number: JP-BAYER-2011-038939

PATIENT
  Age: 74 Year
  Sex: Male
  Weight: 59 kg

DRUGS (14)
  1. MOBIC [Suspect]
     Dosage: UNK
     Route: 048
     Dates: start: 20110421, end: 20110428
  2. MAGNESIUM SULFATE [Concomitant]
     Dosage: DAILY DOSE 990 MG
     Route: 048
  3. LENDORMIN [Concomitant]
     Dosage: DAILY DOSE .25 MG
     Route: 048
  4. PLETAL [Concomitant]
     Dosage: DAILY DOSE 100 MG
     Route: 048
  5. MONILAC [Concomitant]
     Dosage: DAILY DOSE 30 ML
     Route: 048
  6. NOVORAPID [Concomitant]
     Dosage: DAILY DOSE 28 U
     Route: 058
  7. CLARITHROMYCIN [Concomitant]
     Dosage: DAILY DOSE 400 MG
     Route: 048
     Dates: start: 20110714
  8. CANDESARTAN CILEXETIL [Concomitant]
     Indication: HYPERTENSION
     Dosage: DAILY DOSE 8 MG
     Route: 048
  9. SIGMART [Concomitant]
     Dosage: DAILY DOSE 15 MG
     Route: 048
  10. OMEPRAZOLE [Concomitant]
     Dosage: DAILY DOSE 20 MG
     Route: 048
  11. FLAVERIC [Concomitant]
     Dosage: DAILY DOSE 60 MG
     Route: 048
     Dates: start: 20110714
  12. DESYREL [Concomitant]
     Dosage: DAILY DOSE 25 MG
     Route: 048
     Dates: start: 20110511
  13. NEXAVAR [Suspect]
     Indication: HEPATIC NEOPLASM MALIGNANT
     Dosage: 200 MG, BID
     Route: 048
     Dates: start: 20110322, end: 20110427
  14. MIYA BM [Concomitant]
     Dosage: DAILY DOSE 1.5 MG
     Route: 048

REACTIONS (2)
  - HEPATIC FUNCTION ABNORMAL [None]
  - HEPATIC ENCEPHALOPATHY [None]
